FAERS Safety Report 12464054 (Version 1)
Quarter: 2016Q2

REPORT INFORMATION
  Report Type: Spontaneous
  Country: US (occurrence: None)
  Receive Date: 20160613
  Receipt Date: 20160613
  Transmission Date: 20160815
  Serious: Yes (Hospitalization)
  Sender: FDA-Public Use
  Company Number: None

PATIENT
  Sex: Male
  Weight: 66.7 kg

DRUGS (15)
  1. FAMOTIDINE. [Concomitant]
     Active Substance: FAMOTIDINE
  2. FENATANYL [Concomitant]
  3. PREDNISONE. [Concomitant]
     Active Substance: PREDNISONE
  4. TAMSULOSIN [Concomitant]
     Active Substance: TAMSULOSIN
  5. PALBOCICLIB 125 MG [Suspect]
     Active Substance: PALBOCICLIB
     Indication: HEAD AND NECK CANCER METASTATIC
     Dosage: 125 MG DAYS 1-21 PO
     Route: 048
     Dates: start: 20160114, end: 20160601
  6. LYRICA [Concomitant]
     Active Substance: PREGABALIN
  7. BUPROPION. [Concomitant]
     Active Substance: BUPROPION
  8. OXYCODONE [Concomitant]
     Active Substance: OXYCODONE
  9. PROCHLORPERAZINE. [Concomitant]
     Active Substance: PROCHLORPERAZINE
  10. MINOCYCLINE [Concomitant]
     Active Substance: MINOCYCLINE\MINOCYCLINE HYDROCHLORIDE
  11. SERTRALINE [Concomitant]
     Active Substance: SERTRALINE HYDROCHLORIDE
  12. SULFAMETHOXAZOLE [Concomitant]
     Active Substance: SULFAMETHOXAZOLE
  13. CEVIMELINE. [Concomitant]
     Active Substance: CEVIMELINE
  14. CETUXIMAB 250 MG/M2 IV [Suspect]
     Active Substance: CETUXIMAB
     Indication: HEAD AND NECK CANCER METASTATIC
     Route: 042
     Dates: start: 20160114, end: 20160526
  15. GABAPENTIN. [Concomitant]
     Active Substance: GABAPENTIN

REACTIONS (3)
  - Pneumonia aspiration [None]
  - Pneumonia [None]
  - Dyspnoea [None]

NARRATIVE: CASE EVENT DATE: 20160601
